FAERS Safety Report 7289333-1 (Version None)
Quarter: 2011Q1

REPORT INFORMATION
  Report Type: 
  Country: None (occurrence: None)
  Receive Date: 20110211
  Receipt Date: 20110204
  Transmission Date: 20110831
  Serious: No
  Sender: FDA-Public Use
  Company Number: US-CEPHALON-2011000613

PATIENT
  Sex: Male
  Weight: 74 kg

DRUGS (10)
  1. PROMETHAZINE [Concomitant]
     Indication: NAUSEA
     Route: 048
     Dates: start: 20090101
  2. FENTORA [Suspect]
     Indication: MIGRAINE
     Route: 002
  3. PHENADOC PROMETHACINE [Concomitant]
     Indication: NAUSEA
     Route: 054
     Dates: start: 20090101
  4. PHENADOC PROMETHACINE [Concomitant]
     Route: 048
  5. FENTORA [Suspect]
     Indication: NECK PAIN
  6. OPANA IR [Concomitant]
     Dates: start: 20090801
  7. VALIUM [Concomitant]
     Indication: MUSCLE SPASMS
     Dates: start: 20100901
  8. RELPAX [Concomitant]
     Indication: MIGRAINE
     Dates: start: 20090101
  9. OPANA ER [Concomitant]
     Dates: start: 20090801
  10. PROPRANALOL ER [Concomitant]
     Indication: HEART RATE INCREASED
     Route: 048
     Dates: start: 20101101

REACTIONS (2)
  - CIRCUMSTANCE OR INFORMATION CAPABLE OF LEADING TO MEDICATION ERROR [None]
  - DRUG PRESCRIBING ERROR [None]
